FAERS Safety Report 12080090 (Version 1)
Quarter: 2016Q1

REPORT INFORMATION
  Report Type: Spontaneous
  Country: US (occurrence: US)
  Receive Date: 20160216
  Receipt Date: 20160216
  Transmission Date: 20160526
  Serious: Yes (Hospitalization)
  Sender: FDA-Public Use
  Company Number: US-PFIZER INC-2016081716

PATIENT
  Age: 35 Year
  Sex: Female
  Weight: 61.69 kg

DRUGS (1)
  1. IBRANCE [Suspect]
     Active Substance: PALBOCICLIB
     Indication: BREAST CANCER
     Dosage: 125 MG, DAILY
     Dates: end: 201512

REACTIONS (4)
  - Fibrosis [Unknown]
  - Infection [Recovering/Resolving]
  - Local swelling [Unknown]
  - Renal disorder [Unknown]

NARRATIVE: CASE EVENT DATE: 201512
